FAERS Safety Report 13256832 (Version 3)
Quarter: 2017Q1

REPORT INFORMATION
  Report Type: Spontaneous
  Country: IT (occurrence: IT)
  Receive Date: 20170221
  Receipt Date: 20170306
  Transmission Date: 20170428
  Serious: Yes (Congenital Anomaly)
  Sender: FDA-Public Use
  Company Number: IT-SA-2017SA021730

PATIENT

DRUGS (4)
  1. LANTUS [Suspect]
     Active Substance: INSULIN GLARGINE
     Indication: MATERNAL EXPOSURE TIMING UNSPECIFIED
     Route: 065
  2. LANTUS [Suspect]
     Active Substance: INSULIN GLARGINE
     Indication: MATERNAL EXPOSURE TIMING UNSPECIFIED
     Dosage: DOSE:26 UNIT(S)
     Route: 065
     Dates: start: 20160217, end: 20170207
  3. NOVORAPID [Suspect]
     Active Substance: INSULIN ASPART
     Indication: MATERNAL EXPOSURE TIMING UNSPECIFIED
     Dosage: DOSE:25 UNIT(S)
     Route: 065
     Dates: start: 20160217, end: 20170207
  4. FLEXPEN [Concomitant]
     Active Substance: UNSPECIFIED INGREDIENT
     Dates: start: 20160217, end: 20170207

REACTIONS (3)
  - Pulmonary artery stenosis [Not Recovered/Not Resolved]
  - Pulmonary hypoplasia [Unknown]
  - Foetal exposure during pregnancy [Unknown]

NARRATIVE: CASE EVENT DATE: 20170118
